FAERS Safety Report 16813412 (Version 2)
Quarter: 2019Q3

REPORT INFORMATION
  Report Type: Spontaneous
  Country: US (occurrence: US)
  Receive Date: 20190917
  Receipt Date: 20190917
  Transmission Date: 20191005
  Serious: Yes (Death, Hospitalization)
  Sender: FDA-Public Use
  Company Number: PHHY2019US213927

PATIENT
  Age: 33 Year
  Sex: Female

DRUGS (15)
  1. TAZOBACTAM [Concomitant]
     Active Substance: TAZOBACTAM
     Indication: NEUTROPENIC COLITIS
     Dosage: UNK
     Route: 042
  2. METRONIDAZOLE. [Concomitant]
     Active Substance: METRONIDAZOLE
     Indication: PRODUCT USED FOR UNKNOWN INDICATION
     Dosage: UNK
     Route: 065
  3. CASPOFUNGIN [Suspect]
     Active Substance: CASPOFUNGIN
     Indication: FUSARIUM INFECTION
     Dosage: 50 MG, QD
     Route: 042
  4. PIPERACILLIN. [Concomitant]
     Active Substance: PIPERACILLIN SODIUM
     Indication: NEUTROPENIC COLITIS
     Dosage: UNK
     Route: 042
  5. VORICONAZOLE. [Suspect]
     Active Substance: VORICONAZOLE
     Dosage: 100 PG, UNK
     Route: 031
  6. AMPHOTERICIN B. [Suspect]
     Active Substance: AMPHOTERICIN B
     Indication: FUSARIUM INFECTION
     Dosage: 5 MG/KG, Q12H
     Route: 042
  7. CYTARABINE. [Concomitant]
     Active Substance: CYTARABINE
     Indication: ACUTE MYELOID LEUKAEMIA
     Dosage: UNK
     Route: 065
  8. CIPROFLOXACIN. [Concomitant]
     Active Substance: CIPROFLOXACIN
     Indication: PRODUCT USED FOR UNKNOWN INDICATION
     Dosage: UNK
     Route: 065
  9. TERBINAFINE. [Suspect]
     Active Substance: TERBINAFINE
     Indication: FUSARIUM INFECTION
     Dosage: 250 MG, QD
     Route: 048
  10. VORICONAZOLE. [Suspect]
     Active Substance: VORICONAZOLE
     Indication: FUSARIUM INFECTION
     Dosage: 4 MG/KG, Q12H
     Route: 065
  11. VORICONAZOLE. [Suspect]
     Active Substance: VORICONAZOLE
     Dosage: 33 PG, UNK (EVERY 3-5 DAYS IN EACH EYE)
     Route: 031
  12. IDARUBICIN [Concomitant]
     Active Substance: IDARUBICIN
     Indication: ACUTE MYELOID LEUKAEMIA
     Dosage: UNK
     Route: 065
  13. AZACITIDINE. [Suspect]
     Active Substance: AZACITIDINE
     Indication: PRODUCT USED FOR UNKNOWN INDICATION
     Dosage: UNK
     Route: 065
  14. VORICONAZOLE. [Suspect]
     Active Substance: VORICONAZOLE
     Indication: ENDOPHTHALMITIS
     Dosage: UNK
     Route: 065
  15. AMPHOTERICIN B. [Suspect]
     Active Substance: AMPHOTERICIN B
     Dosage: 10 PG, UNK
     Route: 031

REACTIONS (12)
  - Abscess fungal [Unknown]
  - Fusarium infection [Unknown]
  - Respiratory failure [Fatal]
  - Endophthalmitis [Recovered/Resolved]
  - Cholecystitis infective [Recovered/Resolved]
  - Infective aneurysm [Unknown]
  - Transaminases increased [Unknown]
  - Septic shock [Fatal]
  - Acute respiratory failure [Fatal]
  - Pneumonia bacterial [Fatal]
  - Cholecystitis acute [Unknown]
  - Staphylococcal infection [Recovered/Resolved]
